FAERS Safety Report 4392768-8 (Version None)
Quarter: 2004Q3

REPORT INFORMATION
  Report Type: 
  Country: None (occurrence: None)
  Receive Date: 20040702
  Receipt Date: 20040202
  Transmission Date: 20050211
  Serious: Yes (Hospitalization, Other)
  Sender: FDA-Public Use
  Company Number: 2004006839

PATIENT
  Age: 61 Year
  Sex: Male
  Weight: 73 kg

DRUGS (12)
  1. SORTIS (ATORVASTATIN) [Suspect]
     Indication: ILL-DEFINED DISORDER
     Dosage: 40 MG, ORAL
     Route: 048
  2. VFEND [Suspect]
     Indication: ASPERGILLOSIS
     Dosage: 400 MG, ORAL
     Route: 048
     Dates: start: 20031229, end: 20040104
  3. CODEINE(CODEINE) (CODEINE) [Suspect]
     Indication: COUGH
     Dosage: 75 MG (TID), ORAL
     Route: 048
     Dates: start: 20031228, end: 20031230
  4. CLARITHROMYCIN [Suspect]
     Indication: ILL-DEFINED DISORDER
     Dosage: 1 GRAM (BID), ORAL
     Route: 048
     Dates: start: 20031227, end: 20031230
  5. ERGENYL CHRONO (VALPROIC ACID, VALPROATE SODIUM) [Suspect]
     Indication: EPILEPSY
     Dosage: 1.5 GRAM ,ORAL
     Route: 048
  6. BLOPRESS (CANDESARTAN CILEXETIL) [Concomitant]
  7. ASPIRIN [Concomitant]
  8. PLAVIX [Concomitant]
  9. PLAVIX [Concomitant]
  10. DICODID (HYDROCODONE BITARTRATE) [Concomitant]
  11. ATROPINE [Concomitant]
  12. LORAZEPAM [Concomitant]

REACTIONS (11)
  - BRADYPNOEA [None]
  - COUGH [None]
  - DRUG INTERACTION [None]
  - HYPERCAPNIA [None]
  - INTENTIONAL OVERDOSE [None]
  - LOCKED-IN SYNDROME [None]
  - MENINGITIS [None]
  - MIOSIS [None]
  - OTITIS MEDIA [None]
  - PYREXIA [None]
  - RESPIRATORY DEPRESSION [None]
